FAERS Safety Report 7771257-4 (Version None)
Quarter: 2011Q3

REPORT INFORMATION
  Report Type: 
  Country: None (occurrence: None)
  Receive Date: 20110920
  Receipt Date: 20110901
  Transmission Date: 20111222
  Serious: Yes (Hospitalization)
  Sender: FDA-Public Use
  Company Number: 11-ADE-SU-0092-ACT

PATIENT
  Age: 63 Year
  Sex: Male

DRUGS (6)
  1. ZOLOFT [Concomitant]
  2. H.P. ACTHAR GEL [Suspect]
     Indication: MULTIPLE SCLEROSIS
     Dosage: 80 IU IM DAILY X 5 DAYS
     Dates: start: 20110827, end: 20110831
  3. TYSABRI [Concomitant]
  4. KEPPRA [Concomitant]
  5. PROVIGIL [Concomitant]
  6. BACLOFEN [Concomitant]

REACTIONS (5)
  - TREMOR [None]
  - DIZZINESS [None]
  - STAPHYLOCOCCAL INFECTION [None]
  - ALTERED STATE OF CONSCIOUSNESS [None]
  - LOSS OF CONSCIOUSNESS [None]
